FAERS Safety Report 20896503 (Version 1)
Quarter: 2022Q2

REPORT INFORMATION
  Report Type: Report from Study
  Country: JP (occurrence: JP)
  Receive Date: 20220531
  Receipt Date: 20220531
  Transmission Date: 20220721
  Serious: Yes (Other)
  Sender: FDA-Public Use
  Company Number: JP-JT-EVA201803765GILEAD-001

PATIENT
  Age: 42 Year
  Sex: Male

DRUGS (4)
  1. EMTRICITABINE\TENOFOVIR [Suspect]
     Active Substance: EMTRICITABINE\TENOFOVIR
     Indication: HIV infection
     Dosage: 1 DOSAGE FORM, QD
     Route: 048
     Dates: start: 20170324
  2. TIVICAY [Suspect]
     Active Substance: DOLUTEGRAVIR SODIUM
     Indication: HIV infection
     Dosage: 50 MG, QD
     Route: 065
     Dates: start: 20140802
  3. FEBUXOSTAT [Concomitant]
     Active Substance: FEBUXOSTAT
     Indication: Blood uric acid increased
     Dosage: 10 MG
     Dates: start: 20200626, end: 20200730
  4. FEBUXOSTAT [Concomitant]
     Active Substance: FEBUXOSTAT
     Dosage: 20 MG
     Dates: start: 20200731

REACTIONS (2)
  - Blood triglycerides increased [Not Recovered/Not Resolved]
  - Syphilis [Recovering/Resolving]

NARRATIVE: CASE EVENT DATE: 20170623
